FAERS Safety Report 9345304 (Version 3)
Quarter: 2014Q1

REPORT INFORMATION
  Report Type: Spontaneous
  Country: US (occurrence: US)
  Receive Date: 20130613
  Receipt Date: 20140212
  Transmission Date: 20141002
  Serious: Yes (Hospitalization)
  Sender: FDA-Public Use
  Company Number: US-B.I. PHARMACEUTICALS,INC./RIDGEFIELD-2013-BI-16119BP

PATIENT
  Age: 66 Year
  Sex: Female
  Weight: 76.66 kg

DRUGS (8)
  1. PRADAXA [Suspect]
     Indication: CEREBROVASCULAR ACCIDENT PROPHYLAXIS
     Dosage: 300 MG
     Route: 048
     Dates: start: 20111202, end: 20120621
  2. PRADAXA [Suspect]
     Indication: THROMBOSIS PROPHYLAXIS
  3. PRADAXA [Suspect]
     Indication: ATRIAL FIBRILLATION
  4. LIPITOR [Concomitant]
     Dosage: 10 MG
     Route: 048
     Dates: start: 2004
  5. METOPROLOL [Concomitant]
     Dosage: 50 MG
     Route: 048
     Dates: start: 2004
  6. AMIODARONE [Concomitant]
     Dosage: 400 MG
     Route: 048
     Dates: start: 2004
  7. DILTIAZEM [Concomitant]
     Dosage: 120 MG
     Route: 048
     Dates: start: 2004
  8. PRO-AIR INHALER [Concomitant]
     Dates: start: 2004

REACTIONS (2)
  - Gastrointestinal haemorrhage [Unknown]
  - Haemorrhagic anaemia [Unknown]
